FAERS Safety Report 6178501-8 (Version None)
Quarter: 2009Q2

REPORT INFORMATION
  Report Type: 
  Country: None (occurrence: None)
  Receive Date: 20090430
  Receipt Date: 20090428
  Transmission Date: 20091009
  Serious: Yes (Other)
  Sender: FDA-Public Use
  Company Number: 200910949BYL

PATIENT
  Age: 55 Year
  Sex: Female

DRUGS (19)
  1. FLUDARA [Suspect]
     Indication: LYMPHOMA
     Dosage: 60 MG ORAL; 60 MG ORAL; 60 MG ORAL
     Route: 048
     Dates: start: 20081029, end: 20081102
  2. FLUDARA [Suspect]
     Indication: LYMPHOMA
     Dosage: 60 MG ORAL; 60 MG ORAL; 60 MG ORAL
     Route: 048
     Dates: start: 20081202, end: 20081206
  3. FLUDARA [Suspect]
     Indication: LYMPHOMA
     Dosage: 60 MG ORAL; 60 MG ORAL; 60 MG ORAL
     Route: 048
     Dates: start: 20090107, end: 20090111
  4. HYDROCORTISONE SODIUM SUCCINATE [Concomitant]
  5. RITUXAN [Concomitant]
  6. PRIMPERAN TAB [Concomitant]
  7. NASEA (RAMOSETRON HYDROCHLORIDE) [Concomitant]
  8. ADRIAMYCIN PFS [Concomitant]
  9. ONCOVIN [Concomitant]
  10. CYCLOPHOSPHAMIDE [Concomitant]
  11. LASIX [Concomitant]
  12. SOLDEM 31 [Concomitant]
  13. SODIUM BICARBONATE [Concomitant]
  14. PREDONINE (PREDNISOLONE [PREDNISOLONE]) [Concomitant]
  15. ALLELOCK (OLOPATADINE HYDROCHLORIDE) [Concomitant]
  16. ACETAMINOPHEN [Concomitant]
  17. FAMOTIDINE [Concomitant]
  18. MUCOSTA (REBAMIPIDE) [Concomitant]
  19. MAGMITT (MAGNESIUM OXIDE) [Concomitant]

REACTIONS (3)
  - EOSINOPHIL COUNT INCREASED [None]
  - NEUTROPHIL COUNT DECREASED [None]
  - WHITE BLOOD CELL COUNT DECREASED [None]
